FAERS Safety Report 22916957 (Version 2)
Quarter: 2023Q4

REPORT INFORMATION
  Report Type: Spontaneous
  Country: US (occurrence: US)
  Receive Date: 20230907
  Receipt Date: 20231218
  Transmission Date: 20240109
  Serious: Yes (Other)
  Sender: FDA-Public Use
  Company Number: US-PFIZER INC-202300293958

PATIENT
  Age: 66 Year
  Sex: Female

DRUGS (1)
  1. METOCLOPRAMIDE HYDROCHLORIDE [Suspect]
     Active Substance: METOCLOPRAMIDE HYDROCHLORIDE
     Dosage: UNK

REACTIONS (7)
  - Drug hypersensitivity [Unknown]
  - Angioedema [Unknown]
  - Pseudostroke [Unknown]
  - Swelling [Unknown]
  - Dyspnoea [Unknown]
  - Hypoaesthesia [Unknown]
  - Swollen tongue [Unknown]
